FAERS Safety Report 14036983 (Version 1)
Quarter: 2017Q4

REPORT INFORMATION
  Report Type: Spontaneous
  Country: MY (occurrence: MY)
  Receive Date: 20171004
  Receipt Date: 20171004
  Transmission Date: 20180321
  Serious: Yes (Hospitalization)
  Sender: FDA-Public Use
  Company Number: MY-IPCA LABORATORIES LIMITED-IPC-2017-MY-003198

PATIENT
  Age: 58 Year
  Sex: Male

DRUGS (1)
  1. WARFARIN [Suspect]
     Active Substance: WARFARIN
     Indication: CARDIAC VALVE DISEASE
     Dosage: 3 MG, UNK

REACTIONS (2)
  - International normalised ratio increased [Recovering/Resolving]
  - Spinal epidural haematoma [Recovering/Resolving]
